FAERS Safety Report 16922541 (Version 1)
Quarter: 2019Q4

REPORT INFORMATION
  Report Type: Spontaneous
  Country: US (occurrence: US)
  Receive Date: 20191016
  Receipt Date: 20191016
  Transmission Date: 20200122
  Serious: Yes (Hospitalization)
  Sender: FDA-Public Use
  Company Number: US-PFIZER INC-2019442577

PATIENT
  Age: 53 Year
  Sex: Female
  Weight: 122.45 kg

DRUGS (4)
  1. LETROZOLE. [Concomitant]
     Active Substance: LETROZOLE
     Dosage: UNK
  2. LISINOPRIL/HYDROKLORTIAZID [Concomitant]
     Dosage: UNK
  3. SYNTHROID [Concomitant]
     Active Substance: LEVOTHYROXINE SODIUM
     Dosage: UNK
  4. IBRANCE [Suspect]
     Active Substance: PALBOCICLIB
     Indication: BREAST CANCER
     Dosage: 75 MG,  DAILY FOR 14 OUT OF 21 DAYS
     Route: 048
     Dates: start: 20180410

REACTIONS (4)
  - Joint injury [Recovered/Resolved]
  - Wound infection staphylococcal [Recovered/Resolved]
  - Off label use [Unknown]
  - Product use issue [Unknown]
